FAERS Safety Report 20007951 (Version 2)
Quarter: 2021Q4

REPORT INFORMATION
  Report Type: Spontaneous
  Country: US (occurrence: US)
  Receive Date: 20211028
  Receipt Date: 20211201
  Transmission Date: 20220303
  Serious: Yes (Hospitalization)
  Sender: FDA-Public Use
  Company Number: US-GSKCCFUS-CASE-01202181_AE-70371

PATIENT
  Sex: Female

DRUGS (1)
  1. FLOVENT HFA [Suspect]
     Active Substance: FLUTICASONE PROPIONATE
     Indication: Product used for unknown indication
     Dosage: UNK, 110MCG INH 134A DC 120D US/T
     Route: 055

REACTIONS (4)
  - COVID-19 [Unknown]
  - Candida infection [Unknown]
  - Wrong technique in device usage process [Unknown]
  - Product complaint [Unknown]
